FAERS Safety Report 7363287-1 (Version None)
Quarter: 2011Q1

REPORT INFORMATION
  Report Type: 
  Country: None (occurrence: None)
  Receive Date: 20110321
  Receipt Date: 20110308
  Transmission Date: 20110831
  Serious: Yes (Hospitalization)
  Sender: FDA-Public Use
  Company Number: US-JNJFOC-20101002932

PATIENT
  Sex: Male
  Weight: 53.9 kg

DRUGS (6)
  1. REMICADE [Suspect]
     Indication: INFLAMMATORY BOWEL DISEASE
     Dosage: TOTAL 9 DOSES
     Route: 042
  2. PREDNISONE [Concomitant]
  3. REMICADE [Suspect]
     Indication: CROHN'S DISEASE
     Dosage: TOTAL 9 DOSES
     Route: 042
  4. TACROLIMUS [Concomitant]
  5. SEPTRA [Concomitant]
  6. METHOTREXATE [Concomitant]

REACTIONS (1)
  - VIRAL INFECTION [None]
